FAERS Safety Report 16082760 (Version 1)
Quarter: 2019Q1

REPORT INFORMATION
  Report Type: Spontaneous
  Country: US (occurrence: US)
  Receive Date: 20190318
  Receipt Date: 20190318
  Transmission Date: 20190418
  Serious: No
  Sender: FDA-Public Use
  Company Number: US-009507513-1903USA005195

PATIENT
  Age: 66 Year
  Sex: Female
  Weight: 77.11 kg

DRUGS (3)
  1. MAXALT [Suspect]
     Active Substance: RIZATRIPTAN BENZOATE
     Dosage: 10 MILLIGRAM TABLET AS NEEDED
     Route: 048
  2. ELETRIPTAN HYDROBROMIDE. [Suspect]
     Active Substance: ELETRIPTAN HYDROBROMIDE
     Indication: MIGRAINE
     Dosage: 40 MILLIGRAM TABLET AS NEEDED
     Route: 048
     Dates: start: 20190131, end: 20190212
  3. MAXALT [Suspect]
     Active Substance: RIZATRIPTAN BENZOATE
     Indication: MIGRAINE
     Dosage: 10 MILLIGRAM TABLET AS NEEDED
     Route: 048

REACTIONS (4)
  - Headache [Unknown]
  - Spinal disorder [Unknown]
  - Drug ineffective [Unknown]
  - Spinal pain [Unknown]

NARRATIVE: CASE EVENT DATE: 201901
